FAERS Safety Report 25707807 (Version 2)
Quarter: 2025Q3

REPORT INFORMATION
  Report Type: Spontaneous
  Country: US (occurrence: US)
  Receive Date: 20250820
  Receipt Date: 20250821
  Transmission Date: 20251020
  Serious: No
  Sender: NOVARTIS
  Company Number: US-ORG100013279-032897

PATIENT
  Sex: Male

DRUGS (1)
  1. LAMISIL [Suspect]
     Active Substance: TERBINAFINE HYDROCHLORIDE
     Indication: Tinea pedis
     Route: 065

REACTIONS (1)
  - Drug ineffective [Unknown]
